FAERS Safety Report 7230330-X (Version None)
Quarter: 2011Q1

REPORT INFORMATION
  Report Type: 
  Country: None (occurrence: None)
  Receive Date: 20110118
  Receipt Date: 20110111
  Transmission Date: 20110831
  Serious: No
  Sender: FDA-Public Use
  Company Number: US-PFIZER INC-2011007885

PATIENT
  Sex: Male
  Weight: 68.6 kg

DRUGS (3)
  1. BACTRIM [Concomitant]
  2. ANDROGEL [Suspect]
     Indication: HYPOGONADISM
     Dosage: 7.5 UNK, DAILY
     Route: 062
  3. LIPITOR [Suspect]
     Indication: BLOOD CHOLESTEROL ABNORMAL
     Dosage: UNK

REACTIONS (1)
  - HEPATIC ENZYME INCREASED [None]
